FAERS Safety Report 8053925-2 (Version None)
Quarter: 2012Q1

REPORT INFORMATION
  Report Type: 
  Country: None (occurrence: None)
  Receive Date: 20120118
  Receipt Date: 20120106
  Transmission Date: 20120608
  Serious: Yes (Other)
  Sender: FDA-Public Use
  Company Number: JP-ELI_LILLY_AND_COMPANY-JP201112001527

PATIENT
  Age: 64 Year
  Sex: Male

DRUGS (4)
  1. FOLIC ACID [Concomitant]
  2. VITAMIN B-12 [Concomitant]
  3. ALIMTA [Suspect]
     Indication: LUNG ADENOCARCINOMA STAGE IV
     Route: 042
  4. CARBOPLATIN [Concomitant]
     Indication: LUNG ADENOCARCINOMA STAGE IV

REACTIONS (2)
  - PLATELET COUNT DECREASED [None]
  - BONE MARROW TUMOUR CELL INFILTRATION [None]
